FAERS Safety Report 16466909 (Version 3)
Quarter: 2019Q3

REPORT INFORMATION
  Report Type: Spontaneous
  Country: US (occurrence: US)
  Receive Date: 20190624
  Receipt Date: 20190906
  Transmission Date: 20191004
  Serious: Yes (Hospitalization)
  Sender: FDA-Public Use
  Company Number: US-AMGEN-USASP2019096493

PATIENT
  Age: 78 Year
  Sex: Female
  Weight: 79.37 kg

DRUGS (1)
  1. REPATHA [Suspect]
     Active Substance: EVOLOCUMAB
     Indication: PRODUCT USED FOR UNKNOWN INDICATION
     Dosage: 140 MILLIGRAM, Q2WK
     Route: 065

REACTIONS (8)
  - Abdominal discomfort [Unknown]
  - Hyponatraemia [Unknown]
  - Inappropriate schedule of product administration [Unknown]
  - Arthralgia [Unknown]
  - Hyperglycaemia [Unknown]
  - Blood pressure increased [Unknown]
  - Blood glucose increased [Unknown]
  - Fatigue [Unknown]
